FAERS Safety Report 16544833 (Version 1)
Quarter: 2019Q3

REPORT INFORMATION
  Report Type: Spontaneous
  Country: DE (occurrence: DE)
  Receive Date: 20190709
  Receipt Date: 20190709
  Transmission Date: 20191004
  Serious: Yes (Hospitalization)
  Sender: FDA-Public Use
  Company Number: PHHY2019DE154804

PATIENT
  Age: 80 Year
  Sex: Female
  Weight: 61.1 kg

DRUGS (13)
  1. PALLADON [Concomitant]
     Active Substance: HYDROMORPHONE
     Indication: PRODUCT USED FOR UNKNOWN INDICATION
     Dosage: 1.3 MG, BEDARF, KAPSELN
     Route: 048
  2. EUGALAC [Concomitant]
     Indication: PRODUCT USED FOR UNKNOWN INDICATION
     Dosage: 1 ME?BECHER, 1-0-0-0, SIRUP
     Route: 048
  3. LEVOFLOXACIN. [Concomitant]
     Active Substance: LEVOFLOXACIN
     Indication: PRODUCT USED FOR UNKNOWN INDICATION
     Dosage: 500 MG, UNK (1-0-0-0)
     Route: 048
  4. PACLITAXEL. [Suspect]
     Active Substance: PACLITAXEL
     Indication: PRODUCT USED FOR UNKNOWN INDICATION
     Dosage: SCHEMA, INJEKTIONS-/INFUSIONSL?SUNG
     Route: 042
  5. ESCITALOPRAM [Concomitant]
     Active Substance: ESCITALOPRAM OXALATE
     Indication: PRODUCT USED FOR UNKNOWN INDICATION
     Route: 065
  6. PALLADIUM [Concomitant]
     Active Substance: PALLADIUM
     Indication: PRODUCT USED FOR UNKNOWN INDICATION
     Dosage: 4 MG, 1-0-0-0, RETARD-KAPSELN
     Route: 048
  7. TORASEMID [Concomitant]
     Active Substance: TORSEMIDE
     Indication: PRODUCT USED FOR UNKNOWN INDICATION
     Dosage: 5 MG, 1-0-0-0, TABLETTEN
     Route: 048
  8. L-THYROXINE [Concomitant]
     Active Substance: LEVOTHYROXINE
     Dosage: 125 ?G, 125, TABLETTEN
     Route: 048
  9. GEMCITABINE. [Suspect]
     Active Substance: GEMCITABINE
     Indication: PRODUCT USED FOR UNKNOWN INDICATION
     Dosage: SCHEMA, INJEKTIONS-/INFUSIONSL?SUNG
     Route: 042
  10. PANTOPRAZOL [Concomitant]
     Active Substance: PANTOPRAZOLE SODIUM
     Dosage: 40 MG, 1-0-0-0, TABLETTEN
     Route: 048
  11. ONDANSETRON [Concomitant]
     Active Substance: ONDANSETRON
     Indication: PRODUCT USED FOR UNKNOWN INDICATION
     Dosage: 8 MG, 1-0-1-0, TABLETTEN
     Route: 048
  12. CLEXANE [Concomitant]
     Active Substance: ENOXAPARIN SODIUM
     Indication: PRODUCT USED FOR UNKNOWN INDICATION
     Dosage: 0.4 ML,0-0-1-0, INJECTIONS/INFUSIONS
     Route: 058
  13. NOVALGIN [Concomitant]
     Indication: PRODUCT USED FOR UNKNOWN INDICATION
     Dosage: 40 GTT, 1-1-1-1, TROPFEN
     Route: 048

REACTIONS (4)
  - Fatigue [Unknown]
  - General physical health deterioration [Unknown]
  - Vomiting [Unknown]
  - Nausea [Unknown]
